FAERS Safety Report 8917733 (Version 3)
Quarter: 2013Q2

REPORT INFORMATION
  Report Type: Spontaneous
  Country: LB (occurrence: LB)
  Receive Date: 20121120
  Receipt Date: 20130410
  Transmission Date: 20140414
  Serious: Yes (Death)
  Sender: FDA-Public Use
  Company Number: LB-CELGENEUS-093-20785-12111635

PATIENT
  Age: 66 Year
  Sex: Male

DRUGS (5)
  1. THALIDOMIDE [Suspect]
     Indication: PLASMA CELL MYELOMA
     Dosage: 100 MILLIGRAM
     Route: 048
     Dates: start: 200503, end: 20121018
  2. AUGMENTIN [Concomitant]
     Indication: LUNG INFECTION
     Route: 065
     Dates: start: 20121030, end: 20121101
  3. NEXIUM [Concomitant]
     Indication: PRODUCT USED FOR UNKNOWN INDICATION
     Dosage: 1 TABLET
     Route: 065
     Dates: start: 20121030, end: 20121101
  4. LASIX [Concomitant]
     Indication: CARDIOMYOPATHY
     Dosage: 1 TABLET
     Route: 065
     Dates: start: 20121030, end: 20121101
  5. PLAVIX [Concomitant]
     Indication: THROMBOSIS PROPHYLAXIS
     Dosage: 4 TABLET
     Route: 048
     Dates: start: 20120530, end: 20121101

REACTIONS (1)
  - Abdominal wall haemorrhage [Fatal]
